FAERS Safety Report 4382965-X (Version None)
Quarter: 2004Q2

REPORT INFORMATION
  Report Type: 
  Country: None (occurrence: None)
  Receive Date: 20040617
  Receipt Date: 20040602
  Transmission Date: 20050107
  Serious: No
  Sender: FDA-Public Use
  Company Number: 04P-163-0262701-00

PATIENT
  Age: 50 Year
  Sex: Male

DRUGS (5)
  1. GENGRAF [Suspect]
     Indication: HEART TRANSPLANT
  2. GENGRAF [Suspect]
     Indication: POST PROCEDURAL COMPLICATION
  3. PREDNISONE [Concomitant]
  4. MYCOPHENOLATE MOFETIL [Concomitant]
  5. AZATHIOPRINE [Concomitant]

REACTIONS (2)
  - GRAND MAL CONVULSION [None]
  - THERAPEUTIC AGENT TOXICITY [None]
